FAERS Safety Report 8961579 (Version 1)
Quarter: 2012Q4

REPORT INFORMATION
  Report Type: 
  Country: US (occurrence: US)
  Receive Date: 20121213
  Receipt Date: 20121213
  Transmission Date: 20130627
  Serious: Yes (Hospitalization, Other)
  Sender: FDA-Public Use
  Company Number: US-BAYER-2012-128046

PATIENT
  Age: 21 Year
  Sex: Female

DRUGS (8)
  1. YAZ [Suspect]
     Indication: SKIN DISORDER NOS
  2. YASMIN [Suspect]
  3. MULTIVITAMIN [Concomitant]
     Dosage: UNK
     Dates: start: 20091229
  4. MINOCYCLINE [Concomitant]
  5. LIDOCAINE [Concomitant]
  6. PHENYTOIN [Concomitant]
  7. LASIX [Concomitant]
  8. KEPPRA [Concomitant]

REACTIONS (9)
  - Pulmonary embolism [Recovered/Resolved]
  - Deep vein thrombosis [None]
  - Jugular vein thrombosis [Recovered/Resolved]
  - Thrombophlebitis superficial [None]
  - Thrombophlebitis superficial [Recovered/Resolved]
  - Deep vein thrombosis [None]
  - Off label use [None]
  - Atrial thrombosis [None]
  - Cerebral thrombosis [None]
